FAERS Safety Report 8185743-9 (Version None)
Quarter: 2012Q1

REPORT INFORMATION
  Report Type: 
  Country: None (occurrence: None)
  Receive Date: 20120305
  Receipt Date: 20120301
  Transmission Date: 20120608
  Serious: Yes (Hospitalization)
  Sender: FDA-Public Use
  Company Number: CA-AMGEN-CANSP2011044258

PATIENT
  Age: 64 Year
  Sex: Male

DRUGS (7)
  1. RAMIPRIL [Concomitant]
     Indication: HYPERTENSION
     Dosage: 10 MG, BID
     Route: 048
  2. TRAMADOL HYDROCHLORIDE/ACETAMINOPHEN [Concomitant]
     Dosage: UNK UNK, UNK
     Route: 048
  3. NORTRIPTYLINE HCL [Concomitant]
     Dosage: 25 MG, Q8H
     Route: 048
     Dates: start: 20100101
  4. OXYCONTIN [Concomitant]
     Dosage: UNK UNK, Q8H
     Route: 048
  5. RANITIDINE [Concomitant]
     Dosage: UNK
  6. OXYCONTIN [Concomitant]
     Indication: PAIN
     Dosage: UNK UNK, UNK
     Route: 048
  7. ENBREL [Suspect]
     Indication: PSORIASIS
     Dosage: 50 MG, 2 TIMES/WK
     Dates: start: 20101126

REACTIONS (4)
  - ASTHENIA [None]
  - SEPSIS [None]
  - DIZZINESS [None]
  - MALAISE [None]
